FAERS Safety Report 15668819 (Version 1)
Quarter: 2018Q4

REPORT INFORMATION
  Report Type: Spontaneous
  Country: DE (occurrence: DE)
  Receive Date: 20181129
  Receipt Date: 20181129
  Transmission Date: 20190205
  Serious: Yes (Other)
  Sender: FDA-Public Use
  Company Number: DE-SUN PHARMACEUTICAL INDUSTRIES LTD-2018RR-192280

PATIENT
  Age: 72 Year
  Sex: Male
  Weight: 82 kg

DRUGS (1)
  1. ATORVASTATIN [Suspect]
     Active Substance: ATORVASTATIN
     Indication: PRODUCT USED FOR UNKNOWN INDICATION
     Dosage: 1 TBL./D
     Route: 048
     Dates: start: 201706, end: 201708

REACTIONS (5)
  - Haemorrhage [Recovered/Resolved]
  - Flatulence [Recovered/Resolved]
  - Drug eruption [Recovered/Resolved]
  - Anal incontinence [Recovered/Resolved]
  - Constipation [Recovered/Resolved]

NARRATIVE: CASE EVENT DATE: 2017
